FAERS Safety Report 8834019 (Version 2)
Quarter: 2014Q1

REPORT INFORMATION
  Report Type: Spontaneous
  Country: FI (occurrence: FI)
  Receive Date: 20121010
  Receipt Date: 20140314
  Transmission Date: 20141002
  Serious: Yes (Other)
  Sender: FDA-Public Use
  Company Number: PHHY2012FI086833

PATIENT
  Age: 71 Year
  Sex: Male
  Weight: 68 kg

DRUGS (9)
  1. DONEPEZIL [Suspect]
     Indication: DEMENTIA ALZHEIMER^S TYPE
     Dosage: 10 MG, UNK
  2. ROCURONIUM BROMIDE [Interacting]
     Indication: ANAESTHESIA
     Dosage: 35 MG, UNK
     Route: 042
  3. ROCURONIUM BROMIDE [Interacting]
     Dosage: 15 MG, UNK
     Route: 042
  4. ROCURONIUM BROMIDE [Interacting]
     Dosage: 10 MG, UNK
     Route: 042
  5. GLYCOPYRROLATE [Concomitant]
     Dosage: 0.2 MG, UNK
  6. GLYCOPYRROLATE [Concomitant]
     Dosage: 0.5 MG, UNK
  7. FENTANYL [Concomitant]
     Dosage: 150 UG, UNK
  8. PROPOFOL [Concomitant]
     Dosage: 130 MG, UNK
  9. SEVOFLURANE [Concomitant]

REACTIONS (2)
  - Drug interaction [Unknown]
  - Drug effect decreased [Unknown]
